FAERS Safety Report 6931193-X (Version None)
Quarter: 2010Q3

REPORT INFORMATION
  Report Type: 
  Country: None (occurrence: None)
  Receive Date: 20100813
  Receipt Date: 20100615
  Transmission Date: 20110219
  Serious: No
  Sender: FDA-Public Use
  Company Number: GW FILE C-10-057

PATIENT
  Sex: Female

DRUGS (1)
  1. BACITRACIN TOPICAL OINTMENT [Suspect]
     Dosage: EXTERNAL

REACTIONS (2)
  - DERMATITIS CONTACT [None]
  - HYPERSENSITIVITY [None]
